FAERS Safety Report 9771056 (Version 2)
Quarter: 2013Q4

REPORT INFORMATION
  Report Type: Spontaneous
  Country: JP (occurrence: JP)
  Receive Date: 20131218
  Receipt Date: 20131218
  Transmission Date: 20140711
  Serious: Yes (Hospitalization)
  Sender: FDA-Public Use
  Company Number: JP-B.I. PHARMACEUTICALS,INC./RIDGEFIELD-2013-BI-35403NB

PATIENT
  Age: 72 Year
  Sex: Male
  Weight: 47.6 kg

DRUGS (2)
  1. PRAZAXA [Suspect]
     Indication: ATRIAL FIBRILLATION
     Dosage: 220 MG
     Route: 048
     Dates: start: 20110411, end: 20131027
  2. NEXIUM / ESOMEPRAZOLE MAGNESIUM HYDRATE [Concomitant]
     Route: 065

REACTIONS (2)
  - Mitral valve incompetence [Recovered/Resolved]
  - Oesophagitis [Recovered/Resolved]
